FAERS Safety Report 20040380 (Version 1)
Quarter: 2021Q4

REPORT INFORMATION
  Report Type: Spontaneous
  Country: US (occurrence: None)
  Receive Date: 20211105
  Receipt Date: 20211105
  Transmission Date: 20220303
  Serious: Yes (Life-Threatening)
  Sender: FDA-Public Use
  Company Number: None

PATIENT
  Age: 64 Year
  Sex: Male
  Weight: 98.4 kg

DRUGS (2)
  1. TOCILIZUMAB [Suspect]
     Active Substance: TOCILIZUMAB
     Indication: COVID-19 pneumonia
     Dosage: OTHER FREQUENCY : ONCE;?
     Route: 042
     Dates: start: 20211010, end: 20211010
  2. Dexamethasone 6mg daily [Concomitant]
     Dates: start: 20211010, end: 20211019

REACTIONS (4)
  - Pyrexia [None]
  - Sputum culture positive [None]
  - Aspergillus infection [None]
  - Subcutaneous emphysema [None]

NARRATIVE: CASE EVENT DATE: 20211021
